FAERS Safety Report 5992938-9 (Version None)
Quarter: 2008Q4

REPORT INFORMATION
  Report Type: 
  Country: None (occurrence: None)
  Receive Date: 20081212
  Receipt Date: 20081205
  Transmission Date: 20090506
  Serious: Yes (Hospitalization)
  Sender: FDA-Public Use
  Company Number: DK-JNJFOC-20081201717

PATIENT
  Sex: Male

DRUGS (5)
  1. RISPERDAL CONSTA [Suspect]
     Route: 030
  2. RISPERDAL CONSTA [Suspect]
     Indication: DELUSIONAL DISORDER, PERSECUTORY TYPE
     Route: 030
  3. SEROQUEL [Concomitant]
     Route: 048
  4. SEROQUEL [Concomitant]
     Indication: DELUSIONAL DISORDER, PERSECUTORY TYPE
     Route: 048
  5. ALOPAM [Concomitant]
     Indication: DELUSIONAL DISORDER, PERSECUTORY TYPE
     Route: 048

REACTIONS (5)
  - DROOLING [None]
  - ERECTILE DYSFUNCTION [None]
  - FATIGUE [None]
  - HEART RATE INCREASED [None]
  - HEMIPLEGIA [None]
